FAERS Safety Report 6425298-X (Version None)
Quarter: 2009Q4

REPORT INFORMATION
  Report Type: 
  Country: None (occurrence: None)
  Receive Date: 20091102
  Receipt Date: 20091102
  Transmission Date: 20100525
  Serious: Yes (Hospitalization)
  Sender: FDA-Public Use
  Company Number: None

PATIENT
  Age: 48 Year
  Sex: Female

DRUGS (1)
  1. INSULIN [Suspect]
     Indication: DIABETES MELLITUS
     Dosage: TID
     Dates: start: 19990424

REACTIONS (4)
  - CONFUSIONAL STATE [None]
  - DIZZINESS [None]
  - FALL [None]
  - HYPOGLYCAEMIA [None]
